FAERS Safety Report 5656446-7 (Version None)
Quarter: 2008Q1

REPORT INFORMATION
  Report Type: 
  Country: None (occurrence: None)
  Receive Date: 20080309
  Receipt Date: 20080108
  Transmission Date: 20080703
  Serious: No
  Sender: FDA-Public Use
  Company Number: US-BAYER-200810180BCC

PATIENT
  Age: 82 Year
  Sex: Female
  Weight: 61 kg

DRUGS (2)
  1. ALEVE [Suspect]
     Indication: MYALGIA
     Route: 048
     Dates: start: 20050101
  2. ASPIRIN [Concomitant]

REACTIONS (1)
  - STOMACH DISCOMFORT [None]
